FAERS Safety Report 8474598-0 (Version None)
Quarter: 2012Q2

REPORT INFORMATION
  Report Type: 
  Country: None (occurrence: None)
  Receive Date: 20120622
  Receipt Date: 20120611
  Transmission Date: 20120825
  Serious: Yes (Disabling)
  Sender: FDA-Public Use
  Company Number: 1316780

PATIENT
  Age: 38 Year
  Sex: Female

DRUGS (4)
  1. TAXOTERE [Concomitant]
  2. EPIRUBICIN HYDROCHLORIDE [Suspect]
     Indication: BREAST CANCER
     Dates: start: 20081006, end: 20090119
  3. DOCETAXEL [Concomitant]
  4. CYCLOPHOSPHAMIDE [Concomitant]

REACTIONS (7)
  - MENTAL DISORDER [None]
  - HEART TRANSPLANT [None]
  - CARDIAC FAILURE [None]
  - AMNESIA [None]
  - BRAIN NEOPLASM BENIGN [None]
  - DYSPNOEA [None]
  - PULMONARY FUNCTION TEST DECREASED [None]
